FAERS Safety Report 12502810 (Version 1)
Quarter: 2016Q2

REPORT INFORMATION
  Report Type: Spontaneous
  Country: US (occurrence: US)
  Receive Date: 20160628
  Receipt Date: 20160628
  Transmission Date: 20160815
  Serious: No
  Sender: FDA-Public Use
  Company Number: US-009507513-1606USA011222

PATIENT
  Sex: Female
  Weight: 36.28 kg

DRUGS (1)
  1. NEXPLANON [Suspect]
     Active Substance: ETONOGESTREL
     Indication: CONTRACEPTION
     Dosage: UNK, 3 YEAR IMPLANT
     Route: 059
     Dates: start: 2014

REACTIONS (2)
  - Implant site pain [Unknown]
  - Menstruation irregular [Unknown]
